FAERS Safety Report 8213457-5 (Version None)
Quarter: 2012Q1

REPORT INFORMATION
  Report Type: 
  Country: None (occurrence: None)
  Receive Date: 20120315
  Receipt Date: 20120306
  Transmission Date: 20120608
  Serious: Yes (Other)
  Sender: FDA-Public Use
  Company Number: US-ABBOTT-12P-163-0912407-00

PATIENT

DRUGS (2)
  1. DIVALPROEX SODIUM [Suspect]
     Indication: CONVULSION
  2. DEPAKOTE [Suspect]
     Indication: CONVULSION

REACTIONS (2)
  - INJURY [None]
  - CONVULSION [None]
